FAERS Safety Report 8040106-1 (Version None)
Quarter: 2012Q1

REPORT INFORMATION
  Report Type: 
  Country: None (occurrence: None)
  Receive Date: 20120111
  Receipt Date: 20111227
  Transmission Date: 20120608
  Serious: No
  Sender: FDA-Public Use
  Company Number: US-AMGEN-USASP2011060005

PATIENT
  Age: 49 Year
  Sex: Female

DRUGS (2)
  1. ENBREL [Suspect]
     Indication: PSORIASIS
     Dosage: 50 MG, QWK
     Dates: start: 20100101, end: 20101001
  2. LISINOPRIL [Concomitant]

REACTIONS (9)
  - INCORRECT STORAGE OF DRUG [None]
  - HYPERHIDROSIS [None]
  - ABDOMINAL PAIN UPPER [None]
  - MALAISE [None]
  - DIZZINESS [None]
  - ABDOMINAL DISCOMFORT [None]
  - ASTHENIA [None]
  - NAUSEA [None]
  - VOMITING [None]
